FAERS Safety Report 8433551-3 (Version None)
Quarter: 2012Q2

REPORT INFORMATION
  Report Type: 
  Country: None (occurrence: None)
  Receive Date: 20120613
  Receipt Date: 20120604
  Transmission Date: 20120825
  Serious: Yes (Hospitalization)
  Sender: FDA-Public Use
  Company Number: US-BRISTOL-MYERS SQUIBB COMPANY-16562308

PATIENT
  Age: 55 Year
  Sex: Male
  Weight: 111 kg

DRUGS (12)
  1. IPILIMUMAB [Suspect]
     Indication: MALIGNANT MELANOMA
     Dosage: LAST DOSE:21DEC11, REMOVED FROM PROTOCOL ON 15FEB12. CYC 3 INTERRUPTED AND RESUMED ON 24JAN12 DAY7
     Route: 042
     Dates: start: 20111130
  2. NEXIUM [Concomitant]
  3. LOMOTIL [Concomitant]
     Dosage: TAB
     Route: 048
  4. ASPIRIN [Concomitant]
  5. LIPITOR [Concomitant]
  6. HYDROCHLOROTHIAZIDE [Concomitant]
  7. OMEPRAZOLE [Concomitant]
     Dosage: 1DF=1CAP
     Route: 048
  8. ACETAMINOPHEN [Concomitant]
  9. LISINOPRIL [Concomitant]
  10. PREDNISONE TAB [Concomitant]
     Dosage: 6TABS
     Dates: start: 20120210
  11. PERCOCET [Concomitant]
     Dosage: TAB
     Route: 048
  12. MULTI-VITAMINS [Concomitant]

REACTIONS (3)
  - HEADACHE [None]
  - EYE DISORDER [None]
  - OPHTHALMOPLEGIA [None]
